FAERS Safety Report 4852077-7 (Version None)
Quarter: 2005Q4

REPORT INFORMATION
  Report Type: 
  Country: None (occurrence: None)
  Receive Date: 20051209
  Receipt Date: 20051201
  Transmission Date: 20060501
  Serious: Yes (Other)
  Sender: FDA-Public Use
  Company Number: MEDI-0003900

PATIENT
  Age: 5 Month
  Sex: Male
  Weight: 5.07 kg

DRUGS (1)
  1. SYNAGIS [Suspect]
     Indication: ANTIVIRAL PROPHYLAXIS
     Dosage: 80 MG 1 IN 30 D INTRAMUSCULAR
     Route: 030
     Dates: start: 20051018, end: 20051018

REACTIONS (9)
  - BREATH SOUNDS ABNORMAL [None]
  - CONVULSION [None]
  - CRYING [None]
  - FATIGUE [None]
  - HEART RATE INCREASED [None]
  - OXYGEN SATURATION DECREASED [None]
  - RESPIRATORY RATE INCREASED [None]
  - RHINORRHOEA [None]
  - UPPER RESPIRATORY TRACT CONGESTION [None]
